FAERS Safety Report 4745805-2 (Version None)
Quarter: 2005Q3

REPORT INFORMATION
  Report Type: 
  Country: None (occurrence: None)
  Receive Date: 20050815
  Receipt Date: 20050815
  Transmission Date: 20060218
  Serious: Yes (Death, Hospitalization)
  Sender: FDA-Public Use
  Company Number: None

PATIENT
  Age: 19 Year
  Sex: Female
  Weight: 58.9676 kg

DRUGS (3)
  1. TYLENOL COLD AND FLU EXTRA STRENGTH [Suspect]
     Dosage: 4 DAY ORAL
     Route: 048
     Dates: start: 20001101, end: 20010103
  2. EXTRA STRENGTH TYLENOL [Suspect]
     Dosage: 4 DAY
  3. ERYTHROMYCIN [Concomitant]

REACTIONS (1)
  - TOXIC EPIDERMAL NECROLYSIS [None]
